FAERS Safety Report 25085994 (Version 1)
Quarter: 2025Q1

REPORT INFORMATION
  Report Type: Spontaneous
  Country: US (occurrence: None)
  Receive Date: 20250316
  Receipt Date: 20250316
  Transmission Date: 20250408
  Serious: No
  Sender: FDA-CTU
  Company Number: None

PATIENT
  Age: 21 Year
  Sex: Male

DRUGS (1)
  1. COSMETICS [Suspect]
     Active Substance: COSMETICS
     Indication: Personal hygiene
     Dosage: OTHER QUANTITY : 1 96G?FREQUENCY : DAILY?
     Route: 061
     Dates: start: 20250222, end: 20250315

REACTIONS (2)
  - Erythema [None]
  - Swelling [None]

NARRATIVE: CASE EVENT DATE: 20250315
